FAERS Safety Report 5082421-X (Version None)
Quarter: 2006Q3

REPORT INFORMATION
  Report Type: 
  Country: None (occurrence: None)
  Receive Date: 20060817
  Receipt Date: 20060810
  Transmission Date: 20061208
  Serious: Yes (Other)
  Sender: FDA-Public Use
  Company Number: 2006JP002625

PATIENT
  Age: 72 Year
  Sex: Male

DRUGS (2)
  1. CEFAMEZIN [Suspect]
     Indication: DRUG USE FOR UNKNOWN INDICATION
     Route: 065
     Dates: start: 20060803
  2. TRANQUILIZER [Concomitant]

REACTIONS (1)
  - TONIC CONVULSION [None]
